FAERS Safety Report 7125143-3 (Version None)
Quarter: 2010Q4

REPORT INFORMATION
  Report Type: 
  Country: None (occurrence: None)
  Receive Date: 20101129
  Receipt Date: 20101115
  Transmission Date: 20110411
  Serious: Yes (Other)
  Sender: FDA-Public Use
  Company Number: US-AMGEN-USASP2010001620

PATIENT

DRUGS (1)
  1. PROCRIT [Suspect]
     Indication: RENAL FAILURE CHRONIC
     Dosage: 9400 UNK, UNK
     Route: 058
     Dates: start: 20050101

REACTIONS (1)
  - HAEMATOCRIT ABNORMAL [None]
